FAERS Safety Report 9095162 (Version 2)
Quarter: 2013Q1

REPORT INFORMATION
  Report Type: Spontaneous
  Country: US (occurrence: None)
  Receive Date: 20130122
  Receipt Date: 20130123
  Transmission Date: 20140127
  Serious: Yes (Other)
  Sender: FDA-Public Use
  Company Number: DKLU1087952

PATIENT
  Age: 14 Month
  Sex: Male

DRUGS (3)
  1. SABRIL (FOR ORAL SOLUTION)(SABRIL)(VIGABATRIN)(500 MG, POWDER FOR ORAL SOLUTION) [Suspect]
     Indication: INFANTILE SPASMS
     Route: 048
     Dates: start: 20120419
  2. ONFI [Concomitant]
  3. TOPIRAMATE (TOPIRAMATE) [Concomitant]

REACTIONS (1)
  - Tonic convulsion [None]
